FAERS Safety Report 4776592-X (Version None)
Quarter: 2005Q3

REPORT INFORMATION
  Report Type: 
  Country: None (occurrence: None)
  Receive Date: 20050915
  Receipt Date: 20050905
  Transmission Date: 20060218
  Serious: Yes (Hospitalization, Other)
  Sender: FDA-Public Use
  Company Number: 2005116171

PATIENT
  Age: 80 Year
  Sex: Female
  Weight: 100 kg

DRUGS (5)
  1. LYRICA [Suspect]
     Indication: POLYNEUROPATHY
     Dosage: 300 MG (150 MG, 2  IN 1 D), ORAL
     Route: 048
     Dates: start: 20050725, end: 20050803
  2. DIGOXIN [Concomitant]
  3. ISOPTIN [Concomitant]
  4. RIFAMPICIN [Concomitant]
  5. FLUCLOXACILLIN (FLUCLOXACILLIN) [Concomitant]

REACTIONS (13)
  - ATRIAL FIBRILLATION [None]
  - BRADYCARDIA [None]
  - CANDIDIASIS [None]
  - CAROTID SINUS SYNDROME [None]
  - CENTRAL LINE INFECTION [None]
  - ENDOCARDITIS [None]
  - EXTRADURAL ABSCESS [None]
  - INTERVERTEBRAL DISCITIS [None]
  - PLEURAL EFFUSION [None]
  - PNEUMONIA ASPIRATION [None]
  - POLYNEUROPATHY [None]
  - RESPIRATORY FAILURE [None]
  - STAPHYLOCOCCAL INFECTION [None]
